FAERS Safety Report 4485278-0 (Version None)
Quarter: 2004Q4

REPORT INFORMATION
  Report Type: 
  Country: None (occurrence: None)
  Receive Date: 20041026
  Receipt Date: 20041014
  Transmission Date: 20050328
  Serious: Yes (Hospitalization)
  Sender: FDA-Public Use
  Company Number: FR-SOLVAY-00204003737

PATIENT
  Age: 74 Year
  Sex: Male
  Weight: 84 kg

DRUGS (6)
  1. COVERSYL [Suspect]
     Indication: ILL-DEFINED DISORDER
     Dosage: DAILY DOSE: 4 MILLIGRAM(S)
     Route: 048
     Dates: start: 20040510
  2. ALKERAN [Suspect]
     Indication: ILL-DEFINED DISORDER
     Dosage: 7 DAYS EVERY 6 WEEKS
     Route: 048
     Dates: start: 20040105
  3. CORTANCYL [Suspect]
     Indication: ILL-DEFINED DISORDER
     Dosage: 7 DAYS EVERY 6 WEEKS
     Route: 048
     Dates: start: 20040105
  4. LASILIX [Suspect]
     Indication: ILL-DEFINED DISORDER
     Dosage: DAILY DOSE: 60 MILLIGRAM(S)
     Route: 048
  5. PREVISCAN [Suspect]
     Indication: ILL-DEFINED DISORDER
     Dosage: DAILY DOSE: 15 MILLIGRAM(S)
     Route: 048
  6. KALEORID [Suspect]
     Indication: ILL-DEFINED DISORDER
     Dosage: DAILY DOSE: 1 DOSAGE FORM
     Route: 048

REACTIONS (3)
  - ASCITES [None]
  - CARDIAC FAILURE [None]
  - RIGHT VENTRICULAR FAILURE [None]
